FAERS Safety Report 7174613-0 (Version None)
Quarter: 2010Q4

REPORT INFORMATION
  Report Type: 
  Country: None (occurrence: None)
  Receive Date: 20101219
  Receipt Date: 20100402
  Transmission Date: 20110411
  Serious: No
  Sender: FDA-Public Use
  Company Number: US-AMGEN-KDL403562

PATIENT

DRUGS (2)
  1. ENBREL [Suspect]
     Indication: RHEUMATOID ARTHRITIS
     Dosage: 50 MG, QWK
     Route: 058
  2. METHOTREXATE [Concomitant]
     Dosage: UNK UNK, UNK

REACTIONS (5)
  - INJECTION SITE INFECTION [None]
  - INJECTION SITE PAIN [None]
  - SINUSITIS [None]
  - THERAPEUTIC RESPONSE DECREASED [None]
  - UPPER AIRWAY OBSTRUCTION [None]
